FAERS Safety Report 14243853 (Version 4)
Quarter: 2018Q2

REPORT INFORMATION
  Report Type: Report from Study
  Country: DE (occurrence: DE)
  Receive Date: 20171201
  Receipt Date: 20180612
  Transmission Date: 20180711
  Serious: Yes (Hospitalization)
  Sender: FDA-Public Use
  Company Number: DE-PFIZER INC-2017511604

PATIENT
  Age: 68 Year
  Sex: Male
  Weight: 74 kg

DRUGS (11)
  1. ABRAXANE [Suspect]
     Active Substance: PACLITAXEL
     Indication: NON-SMALL CELL LUNG CANCER
     Dosage: 100 MG/M2, EVERY DAY
     Route: 041
     Dates: start: 20170830
  2. RANITIC [Concomitant]
     Active Substance: RANITIDINE HYDROCHLORIDE
     Indication: PROPHYLAXIS
     Dosage: 50 MG, UNK
     Route: 041
     Dates: start: 20170830, end: 20171208
  3. FENISTIL [Concomitant]
     Active Substance: DIMETHINDENE
     Indication: PROPHYLAXIS
     Dosage: 4 MG, UNK
     Route: 041
     Dates: start: 20170830, end: 20171208
  4. MCP [Concomitant]
     Active Substance: METOCLOPRAMIDE HYDROCHLORIDE
     Indication: PROPHYLAXIS
     Dosage: 30 MG, UNK
     Route: 048
     Dates: start: 20170830, end: 201712
  5. KEVATRIL [Concomitant]
     Active Substance: GRANISETRON HYDROCHLORIDE
     Indication: PROPHYLAXIS
     Dosage: 1 MG, UNK
     Route: 041
     Dates: start: 20170830, end: 20171208
  6. KEVATRIL [Concomitant]
     Active Substance: GRANISETRON HYDROCHLORIDE
     Dosage: 2 MG, UNK
     Route: 048
     Dates: start: 20170830, end: 201712
  7. DEXAMETHASONE. [Concomitant]
     Active Substance: DEXAMETHASONE
     Indication: PROPHYLAXIS
     Dosage: 4 MG, UNK
     Route: 048
     Dates: start: 20170830, end: 20171212
  8. ABRAXANE [Suspect]
     Active Substance: PACLITAXEL
     Dosage: 100 MG/M2, EVERY DAY
     Route: 041
     Dates: start: 20171011, end: 20171208
  9. SOLU DECORTIN H [Concomitant]
     Active Substance: PREDNISOLONE SODIUM SUCCINATE
     Indication: PROPHYLAXIS
     Dosage: 100 MG, UNK
     Route: 041
     Dates: start: 20170830, end: 201712
  10. CARBOPLATIN. [Suspect]
     Active Substance: CARBOPLATIN
     Indication: NON-SMALL CELL LUNG CANCER
     Dosage: 4 MG*MIN/ML
     Route: 041
     Dates: start: 20170830, end: 20171122
  11. PASPERTIN [Concomitant]
     Indication: PROPHYLAXIS
     Dosage: 2 MG, UNK
     Route: 041
     Dates: start: 20170830, end: 20171208

REACTIONS (5)
  - Constipation [Recovered/Resolved]
  - Platelet count decreased [Recovered/Resolved]
  - Anaemia [Recovered/Resolved]
  - Dehydration [Recovered/Resolved]
  - Malaise [Recovered/Resolved]

NARRATIVE: CASE EVENT DATE: 20171103
